FAERS Safety Report 8677416 (Version 2)
Quarter: 2012Q4

REPORT INFORMATION
  Report Type: 
  Country: FR (occurrence: FR)
  Receive Date: 20120723
  Receipt Date: 20120927
  Transmission Date: 20130627
  Serious: Yes (Other)
  Sender: FDA-Public Use
  Company Number: PHHY2012FR062432

PATIENT
  Age: 60 Year
  Sex: Female

DRUGS (2)
  1. ZOMETA [Suspect]
     Dosage: UNK UKN, UNK
  2. ZOMETA [Suspect]
     Dosage: UNK UKN, UNK

REACTIONS (2)
  - Migraine [Unknown]
  - Bone pain [Unknown]
